FAERS Safety Report 4281852-5 (Version None)
Quarter: 2004Q1

REPORT INFORMATION
  Report Type: 
  Country: None (occurrence: None)
  Receive Date: 20040129
  Receipt Date: 20031105
  Transmission Date: 20041129
  Serious: Yes (Life-Threatening, Hospitalization, Disabling, Other)
  Sender: FDA-Public Use
  Company Number: WAES 0311USA00532

PATIENT
  Age: 55 Year
  Sex: Female
  Weight: 77 kg

DRUGS (3)
  1. PREMPRO [Concomitant]
     Dates: end: 20031101
  2. VIOXX [Suspect]
     Indication: BACK PAIN
     Route: 048
     Dates: start: 20030829, end: 20030919
  3. AMBIEN [Concomitant]

REACTIONS (14)
  - BLOOD PRESSURE INCREASED [None]
  - CEREBRAL ARTERY EMBOLISM [None]
  - CONFUSIONAL STATE [None]
  - CONGENITAL ATRIAL SEPTAL DEFECT [None]
  - DIZZINESS [None]
  - FEELING ABNORMAL [None]
  - HEADACHE [None]
  - HYPOAESTHESIA [None]
  - INFLUENZA LIKE ILLNESS [None]
  - MUSCLE TWITCHING [None]
  - OEDEMA PERIPHERAL [None]
  - PARAESTHESIA [None]
  - RASH [None]
  - VISION BLURRED [None]
